FAERS Safety Report 10527361 (Version 1)
Quarter: 2014Q4

REPORT INFORMATION
  Report Type: Spontaneous
  Country: MY (occurrence: MY)
  Receive Date: 20141020
  Receipt Date: 20141020
  Transmission Date: 20150528
  Serious: Yes (Death)
  Sender: FDA-Public Use
  Company Number: MY-ROCHE-1475004

PATIENT
  Age: 42 Year
  Sex: Female

DRUGS (4)
  1. 5-FLUOROURACIL [Concomitant]
     Active Substance: FLUOROURACIL
     Indication: BREAST CANCER
  2. EPIRUBICIN [Concomitant]
     Active Substance: EPIRUBICIN
     Indication: BREAST CANCER
  3. HERCEPTIN [Suspect]
     Active Substance: TRASTUZUMAB
     Indication: BREAST CANCER
     Dosage: 623 MG (TOTAL)
     Route: 042
  4. CYCLOPHOSPHAMIDE. [Concomitant]
     Active Substance: CYCLOPHOSPHAMIDE
     Indication: BREAST CANCER

REACTIONS (3)
  - Cardiomyopathy [Fatal]
  - Cardiogenic shock [Fatal]
  - Supraventricular tachycardia [Fatal]

NARRATIVE: CASE EVENT DATE: 20130304
